FAERS Safety Report 8894854 (Version 1)
Quarter: 2012Q4

REPORT INFORMATION
  Report Type: 
  Country: CA (occurrence: CA)
  Receive Date: 20121107
  Receipt Date: 20121107
  Transmission Date: 20130627
  Serious: Yes (Death, Other)
  Sender: FDA-Public Use
  Company Number: PHMT2007CA01902

PATIENT
  Sex: Male

DRUGS (1)
  1. SANDOSTATIN LAR [Suspect]
     Indication: CARCINOID TUMOUR
     Dosage: 20 mg, IM every 4 weeks
     Route: 030
     Dates: start: 20070503, end: 20070726

REACTIONS (6)
  - Carcinoid tumour [Fatal]
  - Blood pressure systolic increased [Unknown]
  - Diarrhoea [Unknown]
  - Abdominal pain upper [Unknown]
  - Abdominal pain [Unknown]
  - Injection site pain [Unknown]
